FAERS Safety Report 9165125 (Version 3)
Quarter: 2013Q2

REPORT INFORMATION
  Report Type: Spontaneous
  Country: GB (occurrence: None)
  Receive Date: 20130227
  Receipt Date: 20130619
  Transmission Date: 20140414
  Serious: Yes (Other)
  Sender: FDA-Public Use
  Company Number: KAD201302-000243

PATIENT
  Age: 48 Year
  Sex: Female

DRUGS (5)
  1. RIBAVIRIN [Suspect]
     Indication: HEPATITIS C
     Route: 048
     Dates: start: 20120905
  2. RIBAVIRIN [Suspect]
     Route: 048
     Dates: start: 20120905
  3. RIBAVIRIN [Suspect]
     Indication: HEPATITIS C
     Route: 048
     Dates: start: 20120905
  4. PEGINTERFERON ALFA-2B [Suspect]
     Indication: HEPATITIS C
     Route: 058
     Dates: start: 20120905
  5. TELAPREVIR [Suspect]
     Indication: HEPATITIS C
     Route: 048
     Dates: start: 20120905, end: 20121107

REACTIONS (12)
  - Anaemia [None]
  - Decreased appetite [None]
  - Fatigue [None]
  - Influenza like illness [None]
  - Haemorrhoids [None]
  - Alopecia [None]
  - Lethargy [None]
  - Nausea [None]
  - Oedema mouth [None]
  - Oral candidiasis [None]
  - Rash [None]
  - Swollen tongue [None]
